FAERS Safety Report 5050402-8 (Version None)
Quarter: 2006Q3

REPORT INFORMATION
  Report Type: 
  Country: None (occurrence: None)
  Receive Date: 20060707
  Receipt Date: 20060623
  Transmission Date: 20061208
  Serious: Yes (Other)
  Sender: FDA-Public Use
  Company Number: 510#6#2006-00004

PATIENT
  Age: 54 Year
  Sex: Male

DRUGS (8)
  1. ALPROSTADIL [Suspect]
     Indication: PERIPHERAL ISCHAEMIA
     Dosage: 80 MCG (40 MCG 2 IN 1 DAY(S))
     Route: 041
     Dates: start: 20060606, end: 20060614
  2. DICLOFENAC SODIUM [Concomitant]
  3. TRAMADOL HCL [Concomitant]
  4. AMOXICILLIN [Concomitant]
  5. VERAPAMIL HYDROCHLORIDE [Concomitant]
  6. FUROSEMIDE [Concomitant]
  7. VALSARTAN [Concomitant]
  8. PANTOPRAZOLE SODIUM [Concomitant]

REACTIONS (1)
  - PULMONARY CONGESTION [None]
